FAERS Safety Report 21811172 (Version 1)
Quarter: 2023Q1

REPORT INFORMATION
  Report Type: Report from Study
  Country: US (occurrence: US)
  Receive Date: 20230103
  Receipt Date: 20230103
  Transmission Date: 20230418
  Serious: No
  Sender: FDA-Public Use
  Company Number: US-ABBVIE-4226822

PATIENT
  Sex: Female
  Weight: 76.657 kg

DRUGS (3)
  1. HUMIRA [Suspect]
     Active Substance: ADALIMUMAB
     Indication: Rheumatoid arthritis
     Dosage: FORM STRENGTH: 40 MG
     Route: 058
     Dates: start: 2017
  2. HUMIRA [Suspect]
     Active Substance: ADALIMUMAB
     Dosage: FORM STRENGTH: 40 MG
     Route: 058
     Dates: end: 202211
  3. CELEBREX [Concomitant]
     Active Substance: CELECOXIB
     Indication: Product used for unknown indication
     Dosage: FREQUENCY TEXT: AS NEEDED

REACTIONS (4)
  - Therapeutic product effect decreased [Not Recovered/Not Resolved]
  - Inflammatory marker increased [Unknown]
  - Skin mass [Recovering/Resolving]
  - Skin discharge [Unknown]

NARRATIVE: CASE EVENT DATE: 20220101
